FAERS Safety Report 16469434 (Version 1)
Quarter: 2019Q3

REPORT INFORMATION
  Report Type: Spontaneous
  Country: US (occurrence: US)
  Receive Date: 20190621
  Receipt Date: 20190621
  Transmission Date: 20191004
  Serious: Yes (Life-Threatening, Hospitalization, Disabling)
  Sender: FDA-Public Use
  Company Number: None

PATIENT
  Age: 51 Year
  Sex: Female
  Weight: 197.1 kg

DRUGS (1)
  1. SEROQUEL [Suspect]
     Active Substance: QUETIAPINE FUMARATE
     Indication: INSOMNIA
     Dosage: ?          QUANTITY:90 TABLET(S);?
     Route: 048
     Dates: start: 20170621, end: 20190608

REACTIONS (8)
  - Musculoskeletal stiffness [None]
  - Intentional self-injury [None]
  - Suicidal ideation [None]
  - Myalgia [None]
  - Dysstasia [None]
  - Gait inability [None]
  - Muscular weakness [None]
  - Skin laceration [None]

NARRATIVE: CASE EVENT DATE: 20170621
